FAERS Safety Report 6371370-2 (Version None)
Quarter: 2009Q3

REPORT INFORMATION
  Report Type: 
  Country: None (occurrence: None)
  Receive Date: 20090923
  Receipt Date: 20090910
  Transmission Date: 20100115
  Serious: Yes (Hospitalization, Other)
  Sender: FDA-Public Use
  Company Number: FR-JNJFOC-20090605175

PATIENT
  Age: 45 Year
  Sex: Female

DRUGS (2)
  1. IXPRIM [Suspect]
     Indication: CERVICAL ROOT PAIN
     Route: 048
     Dates: start: 20090309, end: 20090313
  2. CELEBREX [Suspect]
     Indication: ARTHRITIS
     Route: 048
     Dates: start: 20090312, end: 20090313

REACTIONS (5)
  - CONFUSIONAL STATE [None]
  - HYPOKINESIA [None]
  - MIGRAINE [None]
  - SPEECH DISORDER [None]
  - TREMOR [None]
